APPROVED DRUG PRODUCT: ERYTHROMYCIN
Active Ingredient: ERYTHROMYCIN
Strength: 2%
Dosage Form/Route: SWAB;TOPICAL
Application: A064126 | Product #001 | TE Code: AT
Applicant: PADAGIS US LLC
Approved: Jul 3, 1996 | RLD: No | RS: Yes | Type: RX